FAERS Safety Report 4640043-6 (Version None)
Quarter: 2005Q2

REPORT INFORMATION
  Report Type: 
  Country: None (occurrence: None)
  Receive Date: 20050418
  Receipt Date: 20050401
  Transmission Date: 20051028
  Serious: Yes (Hospitalization, Other)
  Sender: FDA-Public Use
  Company Number: A-US2004-08298

PATIENT
  Age: 46 Year
  Sex: Female

DRUGS (13)
  1. TRACLEER [Suspect]
     Indication: PULMONARY HYPERTENSION
     Dosage: SEE IMAGE
     Route: 048
     Dates: start: 20041104, end: 20050104
  2. TRACLEER [Suspect]
     Indication: PULMONARY HYPERTENSION
     Dosage: SEE IMAGE
     Route: 048
     Dates: start: 20050105, end: 20050225
  3. COUMADIN [Concomitant]
  4. SYNTHROID [Concomitant]
  5. NADOLOL [Concomitant]
  6. FLORINEF [Concomitant]
  7. KLOR-CON [Concomitant]
  8. CLONAZEPAM [Concomitant]
  9. MAGNESIUM OXIDE (MAGNESIUM OXIDE) [Concomitant]
  10. BUMEX [Concomitant]
  11. ZAROXOLYN [Concomitant]
  12. DEMADEX [Concomitant]
  13. ALDACTONE [Concomitant]

REACTIONS (19)
  - ABDOMINAL PAIN LOWER [None]
  - BLINDNESS [None]
  - BLOOD POTASSIUM DECREASED [None]
  - CARDIAC DISORDER [None]
  - DIABETES MELLITUS [None]
  - DRUG INTERACTION [None]
  - GAIT DISTURBANCE [None]
  - HEPATITIS [None]
  - HEPATOCELLULAR DAMAGE [None]
  - HYPOXIA [None]
  - INTERNATIONAL NORMALISED RATIO DECREASED [None]
  - INTERNATIONAL NORMALISED RATIO INCREASED [None]
  - MENSTRUATION IRREGULAR [None]
  - NERVOUS SYSTEM DISORDER [None]
  - OVARIAN CYST [None]
  - PANCREATIC DISORDER [None]
  - PHARMACEUTICAL PRODUCT COMPLAINT [None]
  - RENAL DISORDER [None]
  - VISUAL ACUITY REDUCED [None]
